FAERS Safety Report 9237065 (Version 5)
Quarter: 2016Q3

REPORT INFORMATION
  Report Type: Spontaneous
  Country: US (occurrence: US)
  Receive Date: 20130417
  Receipt Date: 20160714
  Transmission Date: 20161109
  Serious: Yes (Disabling, Other)
  Sender: FDA-Public Use
  Company Number: US-009507513-1304USA007693

PATIENT
  Sex: Male
  Weight: 92.63 kg

DRUGS (1)
  1. PROPECIA [Suspect]
     Active Substance: FINASTERIDE
     Indication: ANDROGENETIC ALOPECIA
     Dosage: 1 MG, UNKNOWN
     Route: 048
     Dates: start: 20070418, end: 20070720

REACTIONS (34)
  - Anxiety [Unknown]
  - Dyspepsia [Unknown]
  - Headache [Unknown]
  - Gynaecomastia [Recovering/Resolving]
  - Pain [Not Recovered/Not Resolved]
  - Dyslipidaemia [Unknown]
  - Scrotal mass [Unknown]
  - Hypertension [Unknown]
  - Disturbance in sexual arousal [Unknown]
  - Libido decreased [Not Recovered/Not Resolved]
  - Arthroscopy [Unknown]
  - Cardiac stress test abnormal [Unknown]
  - Blood testosterone decreased [Unknown]
  - Sexual dysfunction [Not Recovered/Not Resolved]
  - Suicidal ideation [Unknown]
  - Genital lesion [Unknown]
  - Testicular mass [Unknown]
  - Acute sinusitis [Unknown]
  - Coronary artery disease [Unknown]
  - Arthroscopy [Unknown]
  - Anorgasmia [Unknown]
  - Genital atrophy [Unknown]
  - Thrombocytosis [Unknown]
  - Abdominal distension [Unknown]
  - Normochromic normocytic anaemia [Unknown]
  - Hypogonadism [Unknown]
  - Erectile dysfunction [Not Recovered/Not Resolved]
  - Cognitive disorder [Not Recovered/Not Resolved]
  - Medical device removal [Unknown]
  - Depression [Not Recovered/Not Resolved]
  - Cognitive disorder [Not Recovered/Not Resolved]
  - Hormone level abnormal [Unknown]
  - Adverse drug reaction [Unknown]
  - Epididymitis [Unknown]

NARRATIVE: CASE EVENT DATE: 2007
